FAERS Safety Report 6479982-2 (Version None)
Quarter: 2009Q4

REPORT INFORMATION
  Report Type: 
  Country: None (occurrence: None)
  Receive Date: 20091208
  Receipt Date: 20091125
  Transmission Date: 20100525
  Serious: No
  Sender: FDA-Public Use
  Company Number: FR-ROCHE-672234

PATIENT
  Age: 3 Year
  Weight: 15 kg

DRUGS (1)
  1. TAMIFLU [Suspect]
     Indication: DRUG USE FOR UNKNOWN INDICATION
     Dosage: 1 INTAKE
     Route: 065

REACTIONS (2)
  - NO ADVERSE EVENT [None]
  - OVERDOSE [None]
